FAERS Safety Report 13448133 (Version 2)
Quarter: 2017Q2

REPORT INFORMATION
  Report Type: Spontaneous
  Country: FR (occurrence: FR)
  Receive Date: 20170417
  Receipt Date: 20170629
  Transmission Date: 20170830
  Serious: Yes (Congenital Anomaly)
  Sender: FDA-Public Use
  Company Number: FR-PFIZER INC-2017166143

PATIENT
  Age: 1 Day
  Sex: Male
  Weight: 1.9 kg

DRUGS (7)
  1. MIFEGYNE [Suspect]
     Active Substance: MIFEPRISTONE
     Dosage: 200 MG, TOTAL
     Route: 064
     Dates: start: 2004
  2. URBANYL [Suspect]
     Active Substance: CLOBAZAM
     Dosage: UNK
     Route: 064
  3. GARDENAL [Suspect]
     Active Substance: PHENOBARBITAL
     Dosage: UNK
     Route: 064
  4. DI-HYDAN [Suspect]
     Active Substance: PHENYTOIN
     Dosage: UNK
     Route: 064
  5. CYTOTEC [Suspect]
     Active Substance: MISOPROSTOL
     Dosage: 600 UG, TOTAL
     Route: 064
     Dates: start: 2004
  6. DEPAKINE [Suspect]
     Active Substance: VALPROATE SODIUM
     Dosage: UNK
     Route: 064
  7. STABLON [Suspect]
     Active Substance: TIANEPTINE
     Dosage: UNK
     Route: 064

REACTIONS (5)
  - Dysmorphism [Not Recovered/Not Resolved]
  - Growth retardation [Unknown]
  - Premature baby [Unknown]
  - Foetal exposure during pregnancy [Unknown]
  - Chylothorax [Unknown]
